FAERS Safety Report 7272986-1 (Version None)
Quarter: 2011Q1

REPORT INFORMATION
  Report Type: 
  Country: None (occurrence: None)
  Receive Date: 20110203
  Receipt Date: 20110128
  Transmission Date: 20110831
  Serious: Yes (Hospitalization)
  Sender: FDA-Public Use
  Company Number: A0910216A

PATIENT
  Age: 59 Year
  Sex: Male

DRUGS (19)
  1. LIPITOR [Concomitant]
  2. AMBIEN [Concomitant]
  3. MECLIZINE [Concomitant]
  4. MS CONTIN [Concomitant]
  5. SERTRALINE [Suspect]
     Route: 065
  6. SEROQUEL [Suspect]
     Route: 065
  7. WELLBUTRIN SR [Concomitant]
  8. PLAVIX [Concomitant]
  9. UNSPECIFIED MEDICATION [Concomitant]
  10. LOSARTAN POTASSIUM [Concomitant]
  11. OXYCODONE HCL [Concomitant]
  12. LYRICA [Concomitant]
  13. DEXILANT [Concomitant]
  14. IMITREX [Suspect]
     Indication: MIGRAINE
     Dosage: 50MG AS REQUIRED
     Route: 048
  15. K-DUR [Concomitant]
  16. PERCOCET [Concomitant]
  17. LOPRESSOR [Concomitant]
  18. XANAX [Concomitant]
  19. SCOPOLAMINE [Concomitant]

REACTIONS (7)
  - CATHETERISATION CARDIAC [None]
  - MYOCARDIAL INFARCTION [None]
  - IMPLANTABLE DEFIBRILLATOR INSERTION [None]
  - DEVICE MALFUNCTION [None]
  - ARTERIAL OCCLUSIVE DISEASE [None]
  - HEART RATE IRREGULAR [None]
  - CORONARY ARTERY BYPASS [None]
